FAERS Safety Report 8091097-9 (Version None)
Quarter: 2012Q1

REPORT INFORMATION
  Report Type: 
  Country: None (occurrence: None)
  Receive Date: 20120130
  Receipt Date: 20120130
  Transmission Date: 20120608
  Serious: No
  Sender: FDA-Public Use
  Company Number: None

PATIENT
  Age: 63 Year
  Sex: Male
  Weight: 150 kg

DRUGS (1)
  1. IMIPENEM AND CILASTATIN SODIUM [Suspect]
     Indication: DIABETIC FOOT
     Dosage: MG SQ
     Route: 058
     Dates: start: 20111122, end: 20111125

REACTIONS (1)
  - ANGIOEDEMA [None]
